FAERS Safety Report 6695154-0 (Version None)
Quarter: 2010Q2

REPORT INFORMATION
  Report Type: 
  Country: None (occurrence: None)
  Receive Date: 20100423
  Receipt Date: 20100413
  Transmission Date: 20101027
  Serious: Yes (Other)
  Sender: FDA-Public Use
  Company Number: GB-GENENTECH-300541

PATIENT
  Sex: Male

DRUGS (4)
  1. MABTHERA [Suspect]
     Indication: B-CELL LYMPHOMA
     Dosage: UNK
     Route: 065
  2. CYCLOPHOSPHAMIDE [Concomitant]
     Indication: B-CELL LYMPHOMA
     Dosage: UNK
  3. VINCRISTINE [Concomitant]
     Indication: B-CELL LYMPHOMA
     Dosage: UNK
  4. PREDNISOLONE [Concomitant]
     Indication: B-CELL LYMPHOMA
     Dosage: UNK

REACTIONS (1)
  - CEREBRAL FUNGAL INFECTION [None]
